FAERS Safety Report 25419607 (Version 1)
Quarter: 2025Q2

REPORT INFORMATION
  Report Type: Spontaneous
  Country: GB (occurrence: GB)
  Receive Date: 20250610
  Receipt Date: 20250610
  Transmission Date: 20250716
  Serious: Yes (Hospitalization, Other)
  Sender: NOVO NORDISK
  Company Number: None

PATIENT
  Weight: 115 kg

DRUGS (4)
  1. EMPAGLIFLOZIN [Suspect]
     Active Substance: EMPAGLIFLOZIN
     Indication: Product used for unknown indication
     Dosage: 10 MG, QD
  2. METFORMIN [Concomitant]
     Active Substance: METFORMIN HYDROCHLORIDE
     Dosage: 1 G, BID
  3. WEGOVY [Suspect]
     Active Substance: SEMAGLUTIDE
     Indication: Product used for unknown indication
  4. WEGOVY [Suspect]
     Active Substance: SEMAGLUTIDE

REACTIONS (5)
  - Euglycaemic diabetic ketoacidosis [Not Recovered/Not Resolved]
  - Urosepsis [Unknown]
  - Vomiting [Recovering/Resolving]
  - Nausea [Unknown]
  - Constipation [Unknown]
